FAERS Safety Report 4534382-7 (Version None)
Quarter: 2004Q4

REPORT INFORMATION
  Report Type: 
  Country: None (occurrence: None)
  Receive Date: 20041214
  Receipt Date: 20041021
  Transmission Date: 20050328
  Serious: Yes (Life-Threatening, Other)
  Sender: FDA-Public Use
  Company Number: 2004240899US

PATIENT
  Age: 79 Year
  Sex: Male
  Weight: 72.6 kg

DRUGS (1)
  1. BEXTRA [Suspect]
     Indication: PLANTAR FASCIITIS
     Dosage: 20 MG, BID, ORAL
     Route: 048
     Dates: start: 20040201, end: 20040201

REACTIONS (2)
  - MYOCARDIAL INFARCTION [None]
  - THROMBOSIS [None]
